FAERS Safety Report 25627087 (Version 1)
Quarter: 2025Q3

REPORT INFORMATION
  Report Type: Spontaneous
  Country: GB (occurrence: GB)
  Receive Date: 20250731
  Receipt Date: 20250731
  Transmission Date: 20251021
  Serious: Yes (Other)
  Sender: HIKMA
  Company Number: None

PATIENT
  Sex: Male

DRUGS (1)
  1. ACYCLOVIR [Suspect]
     Active Substance: ACYCLOVIR
     Indication: Genital herpes
     Route: 065

REACTIONS (1)
  - Psychotic disorder [Not Recovered/Not Resolved]
